FAERS Safety Report 9505583 (Version 1)
Quarter: 2013Q1

REPORT INFORMATION
  Report Type: Spontaneous
  Country: US (occurrence: None)
  Receive Date: 20130220
  Receipt Date: 20130220
  Transmission Date: 20140127
  Serious: No
  Sender: FDA-Public Use
  Company Number: 1000041303

PATIENT
  Age: 64 Year
  Sex: Female

DRUGS (2)
  1. VIIBRYD [Suspect]
     Indication: DEPRESSION
     Dosage: 10MG (10MG, 1 IN 1 D) ORAL
     Dates: start: 20121113, end: 20121119
  2. ZOLPIDEM (ZOLPIDEM) (ZOLPIDEM) [Concomitant]

REACTIONS (2)
  - Stomatitis [None]
  - Libido decreased [None]
